FAERS Safety Report 4764491-9 (Version None)
Quarter: 2005Q3

REPORT INFORMATION
  Report Type: 
  Country: None (occurrence: None)
  Receive Date: 20050909
  Receipt Date: 20050830
  Transmission Date: 20060218
  Serious: Yes (Other)
  Sender: FDA-Public Use
  Company Number: 2005UW12896

PATIENT
  Age: 48 Year
  Sex: Male
  Weight: 81.6 kg

DRUGS (1)
  1. ATACAND [Suspect]
     Indication: HYPERTENSION
     Route: 048
     Dates: start: 20050801

REACTIONS (5)
  - ABDOMINAL PAIN [None]
  - ANXIETY [None]
  - INSOMNIA [None]
  - NEOPLASM MALIGNANT [None]
  - PSYCHOMOTOR HYPERACTIVITY [None]
